FAERS Safety Report 21997990 (Version 2)
Quarter: 2023Q1

REPORT INFORMATION
  Report Type: Report from Study
  Country: IL (occurrence: IL)
  Receive Date: 20230216
  Receipt Date: 20230224
  Transmission Date: 20230417
  Serious: No
  Sender: FDA-Public Use
  Company Number: ISR-028-0608-2023-XPORT-MM-028000001

PATIENT
  Age: 70 Year
  Sex: Female

DRUGS (18)
  1. SELINEXOR [Suspect]
     Active Substance: SELINEXOR
     Indication: Plasma cell myeloma
     Dosage: 40 MG, WEEKLY
     Route: 048
     Dates: start: 20210301, end: 20210804
  2. DEXAMETHASONE [Suspect]
     Active Substance: DEXAMETHASONE
     Indication: Plasma cell myeloma
     Dosage: 40 MG, WEEKLY
     Route: 048
     Dates: start: 20210301
  3. DEXAMETHASONE [Suspect]
     Active Substance: DEXAMETHASONE
     Dosage: 20 MG, WEEKLY
     Route: 048
     Dates: start: 20210628, end: 20210804
  4. POMALIDOMIDE [Suspect]
     Active Substance: POMALIDOMIDE
     Indication: Plasma cell myeloma
     Dosage: 4 MG, QD
     Route: 048
     Dates: start: 20210301
  5. POMALIDOMIDE [Suspect]
     Active Substance: POMALIDOMIDE
     Dosage: 3 MG, QD
     Route: 048
     Dates: start: 20210628, end: 20210804
  6. OLANZAPINE [Concomitant]
     Active Substance: OLANZAPINE
     Indication: Prophylaxis
     Dosage: 5 MG, QD
     Route: 048
     Dates: start: 20210301, end: 20210804
  7. ZALDIAR [Concomitant]
     Active Substance: ACETAMINOPHEN\TRAMADOL HYDROCHLORIDE
     Indication: Pelvic pain
     Dosage: 37.5 MG, PRN
     Route: 048
     Dates: start: 20210225
  8. IMIPRAMINE HYDROCHLORIDE [Concomitant]
     Active Substance: IMIPRAMINE HYDROCHLORIDE
     Indication: Prophylaxis of nausea and vomiting
     Dosage: 10 MG, PRN
     Route: 048
     Dates: start: 20210329
  9. CIPRALEX [Concomitant]
     Active Substance: ESCITALOPRAM OXALATE
     Indication: Anxiety
     Dosage: 10 MG, QD
     Route: 048
     Dates: start: 20210524
  10. LOPERAMIDE [Concomitant]
     Active Substance: LOPERAMIDE
     Indication: Diarrhoea
     Dosage: 1 DOSAGE FORM, 3X/WEEK
     Route: 048
     Dates: start: 2016
  11. ACYCLO-V [Concomitant]
     Indication: Antiviral prophylaxis
     Dosage: 200 MG, BID
     Route: 048
     Dates: start: 20100719
  12. AVILAC [LACTULOSE] [Concomitant]
     Indication: Constipation
     Dosage: UNK
     Route: 048
     Dates: start: 20210329
  13. V DALGIN [Concomitant]
     Indication: Pelvic pain
     Dosage: 25 GTT DROPS, PRN
     Route: 048
     Dates: start: 20210329
  14. ERYTHROPOIETIN [Concomitant]
     Active Substance: ERYTHROPOIETIN
     Indication: Anaemia
     Dosage: 4000 UNIT, WEEKLY
     Route: 058
     Dates: start: 20210726, end: 20210804
  15. OMEPRAZOLE [Concomitant]
     Active Substance: OMEPRAZOLE
     Indication: Prophylaxis
     Dosage: 20 MG
     Route: 048
     Dates: start: 20210314
  16. SETRON [ONDANSETRON] [Concomitant]
     Indication: Prophylaxis
     Dosage: 8 MG, ON DAYS 1, 2, 3, 8, 9, 10, 15, 16, 17, 22, 23, 24 OF EACH CYCLE
     Route: 048
     Dates: start: 20210301, end: 20210804
  17. CALCIUM [Concomitant]
     Active Substance: CALCIUM
     Indication: Osteoporosis
     Dosage: 600 MG, QD
     Route: 048
     Dates: start: 20190226
  18. EUTHYROX [Concomitant]
     Active Substance: LEVOTHYROXINE SODIUM
     Indication: Hypothyroidism
     Dosage: 100 UG, QD
     Route: 048
     Dates: start: 20120615

REACTIONS (3)
  - Acute kidney injury [Recovered/Resolved]
  - Cystitis [Recovered/Resolved]
  - Urinary tract obstruction [Recovered/Resolved]

NARRATIVE: CASE EVENT DATE: 20210804
